FAERS Safety Report 10583225 (Version 1)
Quarter: 2014Q4

REPORT INFORMATION
  Report Type: Spontaneous
  Country: US (occurrence: US)
  Receive Date: 20141114
  Receipt Date: 20141114
  Transmission Date: 20150529
  Serious: Yes (Other)
  Sender: FDA-Public Use
  Company Number: US-AUROBINDO-AUR-APU-2014-11749

PATIENT
  Sex: Male

DRUGS (1)
  1. ALPRAZOLAM. [Suspect]
     Active Substance: ALPRAZOLAM
     Indication: PRODUCT USED FOR UNKNOWN INDICATION
     Route: 065

REACTIONS (7)
  - Malaise [Unknown]
  - Blunted affect [Unknown]
  - Feeling abnormal [Unknown]
  - Insomnia [Unknown]
  - Hypoaesthesia [Unknown]
  - Depression [Unknown]
  - Drug withdrawal syndrome [Unknown]
